FAERS Safety Report 25985151 (Version 1)
Quarter: 2025Q4

REPORT INFORMATION
  Report Type: Spontaneous
  Country: EU (occurrence: EU)
  Receive Date: 20251031
  Receipt Date: 20251031
  Transmission Date: 20260118
  Serious: Yes (Other)
  Sender: TEVA
  Company Number: None

PATIENT
  Age: 39 Year
  Sex: Female

DRUGS (1)
  1. AMOXICILLIN [Suspect]
     Active Substance: AMOXICILLIN
     Indication: Dental operation
     Route: 048
     Dates: start: 202411

REACTIONS (6)
  - Type I hypersensitivity [Recovered/Resolved]
  - Pruritus [Recovered/Resolved]
  - Urticaria [Recovered/Resolved]
  - Tremor [Recovered/Resolved]
  - Malaise [Recovered/Resolved]
  - Dyspnoea [Recovered/Resolved]

NARRATIVE: CASE EVENT DATE: 20241101
